FAERS Safety Report 16866912 (Version 1)
Quarter: 2019Q4

REPORT INFORMATION
  Report Type: Spontaneous
  Country: US (occurrence: US)
  Receive Date: 20190928
  Receipt Date: 20190928
  Transmission Date: 20200122
  Serious: No
  Sender: FDA-Public Use
  Company Number: None

PATIENT
  Age: 48 Year
  Sex: Female
  Weight: 59.85 kg

DRUGS (2)
  1. SAMBUCOL COLD AND FLU NASAL RELIEF [Suspect]
     Active Substance: HOMEOPATHICS
     Indication: NASOPHARYNGITIS
     Dosage: ?          QUANTITY:30 TABLET(S);OTHER FREQUENCY:1 EVERY 3 HOURS;?
     Route: 048
     Dates: start: 20190925, end: 20190926
  2. ONE A DAY MVI FOR WOMEN [Concomitant]

REACTIONS (5)
  - Allergic reaction to excipient [None]
  - Product use complaint [None]
  - Pyrexia [None]
  - Fatigue [None]
  - Arthralgia [None]

NARRATIVE: CASE EVENT DATE: 20190925
